FAERS Safety Report 9186694 (Version 1)
Quarter: 2013Q1

REPORT INFORMATION
  Report Type: Spontaneous
  Country: US (occurrence: US)
  Receive Date: 20130325
  Receipt Date: 20130325
  Transmission Date: 20140127
  Serious: No
  Sender: FDA-Public Use
  Company Number: US-BAUSCH-2012BL001811

PATIENT
  Age: 47 Year
  Sex: Female

DRUGS (2)
  1. POLYMYXIN B SULFATE AND TRIMETHOPRIM [Suspect]
     Indication: SUPERFICIAL INJURY OF EYE
     Route: 047
     Dates: start: 20120306, end: 20120311
  2. PREDNISOLONE ACETATE [Concomitant]
     Route: 047
     Dates: start: 20120306

REACTIONS (3)
  - Vision blurred [Recovering/Resolving]
  - Eyelid margin crusting [Not Recovered/Not Resolved]
  - Lacrimation increased [Recovering/Resolving]
